FAERS Safety Report 17096718 (Version 1)
Quarter: 2019Q4

REPORT INFORMATION
  Report Type: Spontaneous
  Country: US (occurrence: US)
  Receive Date: 20191202
  Receipt Date: 20191202
  Transmission Date: 20200122
  Serious: Yes (Other)
  Sender: FDA-Public Use
  Company Number: US-BRISTOL-MYERS SQUIBB COMPANY-BMS-2019-113226

PATIENT
  Sex: Female
  Weight: 53.07 kg

DRUGS (4)
  1. PREMARIN [Concomitant]
     Active Substance: ESTROGENS, CONJUGATED
     Indication: PRODUCT USED FOR UNKNOWN INDICATION
     Dosage: 1.25 ABSENT
     Route: 065
     Dates: start: 1996
  2. OPDIVO [Suspect]
     Active Substance: NIVOLUMAB
     Indication: PRODUCT USED FOR UNKNOWN INDICATION
     Dosage: UNK UNK, Q4WK
     Route: 065
     Dates: start: 201804, end: 201808
  3. OPDIVO [Suspect]
     Active Substance: NIVOLUMAB
     Indication: MALIGNANT MELANOMA
     Dosage: UNK UNK, Q2WK
     Route: 065
     Dates: start: 201802, end: 201804
  4. GOODYS [Concomitant]
     Active Substance: ACETAMINOPHEN\ASPIRIN\CAFFEINE
     Indication: HEADACHE
     Dosage: UNK, PRN
     Route: 065

REACTIONS (5)
  - Nausea [Unknown]
  - Nasal septum deviation [Unknown]
  - Malignant neoplasm progression [Recovered/Resolved]
  - Type 1 diabetes mellitus [Unknown]
  - Fatigue [Unknown]

NARRATIVE: CASE EVENT DATE: 201808
